FAERS Safety Report 5519705-4 (Version None)
Quarter: 2007Q4

REPORT INFORMATION
  Report Type: 
  Country: None (occurrence: None)
  Receive Date: 20071116
  Receipt Date: 20071112
  Transmission Date: 20080405
  Serious: Yes (Hospitalization)
  Sender: FDA-Public Use
  Company Number: FR-BRISTOL-MYERS SQUIBB COMPANY-13937479

PATIENT
  Age: 29 Year
  Sex: Female
  Weight: 54 kg

DRUGS (8)
  1. SUSTIVA [Suspect]
     Indication: HIV INFECTION
     Dates: start: 20070918
  2. TRUVADA [Suspect]
     Indication: HIV INFECTION
     Dosage: 1 DOSAGE FORM-1 TABLET
     Dates: start: 20070918
  3. RIFADIN [Concomitant]
     Indication: TUBERCULOSIS
     Dates: start: 20070827, end: 20071002
  4. RIMIFON [Concomitant]
     Indication: TUBERCULOSIS
     Dates: start: 20070827, end: 20071002
  5. BACTRIM [Concomitant]
     Indication: PROPHYLAXIS
     Dates: start: 20070630
  6. LEDERFOLINE [Concomitant]
     Indication: PROPHYLAXIS
     Dates: start: 20070629
  7. ZELITREX [Concomitant]
     Indication: HERPES VIRUS INFECTION
     Dates: start: 20070630
  8. TARDYFERON [Concomitant]
     Indication: ANAEMIA
     Dates: start: 20070705, end: 20071002

REACTIONS (1)
  - VIRAL INFECTION [None]
